FAERS Safety Report 8250274-4 (Version None)
Quarter: 2012Q2

REPORT INFORMATION
  Report Type: 
  Country: None (occurrence: None)
  Receive Date: 20120402
  Receipt Date: 20120326
  Transmission Date: 20120825
  Serious: Yes (Hospitalization)
  Sender: FDA-Public Use
  Company Number: IE-B.I. PHARMACEUTICALS,INC./RIDGEFIELD-2012-UK-00087UK

PATIENT
  Sex: Male

DRUGS (3)
  1. LOTS OF MEDICATIONS [Concomitant]
  2. SPIRIVA [Suspect]
     Route: 055
  3. SYMBICORT [Concomitant]

REACTIONS (1)
  - CARDIAC DISORDER [None]
